FAERS Safety Report 14046811 (Version 2)
Quarter: 2017Q4

REPORT INFORMATION
  Report Type: Spontaneous
  Country: US (occurrence: US)
  Receive Date: 20171005
  Receipt Date: 20171101
  Transmission Date: 20180321
  Serious: Yes (Other)
  Sender: FDA-Public Use
  Company Number: US-BEH-2017084005

PATIENT
  Age: 65 Year
  Sex: Female
  Weight: 77.98 kg

DRUGS (39)
  1. VENLAFAXINE [Concomitant]
     Active Substance: VENLAFAXINE HYDROCHLORIDE
  2. ZOFRAN [Concomitant]
     Active Substance: ONDANSETRON HYDROCHLORIDE
  3. POLYETHYLENE GLYCOL [Concomitant]
     Active Substance: POLYETHYLENE GLYCOLS
  4. DIPHENHYDRAMINE. [Concomitant]
     Active Substance: DIPHENHYDRAMINE
  5. ZYRTEC [Concomitant]
     Active Substance: CETIRIZINE HYDROCHLORIDE
  6. ONDANSETRON [Concomitant]
     Active Substance: ONDANSETRON
  7. VITAMIN D                          /00107901/ [Concomitant]
     Active Substance: ERGOCALCIFEROL
  8. ADVAIR HFA [Concomitant]
     Active Substance: FLUTICASONE PROPIONATE\SALMETEROL XINAFOATE
  9. ACETAMINOPHEN. [Concomitant]
     Active Substance: ACETAMINOPHEN
  10. HIZENTRA [Suspect]
     Active Substance: HUMAN IMMUNOGLOBULIN G
     Dosage: UNK
     Route: 058
  11. GABAPENTIN. [Concomitant]
     Active Substance: GABAPENTIN
  12. OXYBUTYNIN. [Concomitant]
     Active Substance: OXYBUTYNIN CHLORIDE
  13. CYMBALTA [Concomitant]
     Active Substance: DULOXETINE HYDROCHLORIDE
  14. RANITIDINE. [Concomitant]
     Active Substance: RANITIDINE
  15. BUSPIRONE [Concomitant]
     Active Substance: BUSPIRONE HYDROCHLORIDE
  16. EPINEPHRINE. [Concomitant]
     Active Substance: EPINEPHRINE
  17. HIZENTRA [Suspect]
     Active Substance: HUMAN IMMUNOGLOBULIN G
     Dosage: UNK
     Route: 058
  18. CLONAZEPAM. [Concomitant]
     Active Substance: CLONAZEPAM
  19. FLAGYL [Concomitant]
     Active Substance: METRONIDAZOLE\METRONIDAZOLE HYDROCHLORIDE
  20. LASIX [Concomitant]
     Active Substance: FUROSEMIDE
  21. CLARITHROMYCIN. [Concomitant]
     Active Substance: CLARITHROMYCIN
  22. AMOXICILLIN AND CLAVULANATE POTASSIUM [Concomitant]
     Active Substance: AMOXICILLIN\CLAVULANATE POTASSIUM
  23. GUAIFENESIN. [Concomitant]
     Active Substance: GUAIFENESIN
  24. IRON [Concomitant]
     Active Substance: IRON
  25. SPIRIVA [Concomitant]
     Active Substance: TIOTROPIUM BROMIDE MONOHYDRATE
  26. POTASSIUM CL [Concomitant]
     Active Substance: POTASSIUM CHLORIDE
  27. TYLENOL WITH CODEINE [Concomitant]
     Active Substance: ACETAMINOPHEN\CODEINE PHOSPHATE
  28. SULFAMETHOXAZOLE [Concomitant]
     Active Substance: SULFAMETHOXAZOLE
  29. NORTRIPTYLINE [Concomitant]
     Active Substance: NORTRIPTYLINE
  30. HYOSCYAMINE. [Concomitant]
     Active Substance: HYOSCYAMINE
  31. LIDOCAINE. [Concomitant]
     Active Substance: LIDOCAINE
  32. HIZENTRA [Suspect]
     Active Substance: HUMAN IMMUNOGLOBULIN G
     Indication: IMMUNODEFICIENCY COMMON VARIABLE
     Dosage: 12 G, QW
     Route: 058
     Dates: start: 20141002
  33. TRAMADOL. [Concomitant]
     Active Substance: TRAMADOL
  34. SINGULAIR [Concomitant]
     Active Substance: MONTELUKAST SODIUM
  35. ALBUTEROL                          /00139501/ [Concomitant]
     Active Substance: ALBUTEROL
  36. TRAZODONE [Concomitant]
     Active Substance: TRAZODONE HYDROCHLORIDE
  37. METRONIDAZOLE. [Concomitant]
     Active Substance: METRONIDAZOLE
  38. NASONEX [Concomitant]
     Active Substance: MOMETASONE FUROATE
  39. CLARITIN [Concomitant]
     Active Substance: LORATADINE

REACTIONS (3)
  - Bronchitis [Unknown]
  - Thyroid cancer [Unknown]
  - Sinusitis [Unknown]

NARRATIVE: CASE EVENT DATE: 20171004
